FAERS Safety Report 17934306 (Version 39)
Quarter: 2025Q2

REPORT INFORMATION
  Report Type: Report from Study
  Country: US (occurrence: US)
  Receive Date: 20200624
  Receipt Date: 20250624
  Transmission Date: 20250716
  Serious: Yes (Other)
  Sender: TAKEDA
  Company Number: US-SHIRE-US202020455

PATIENT
  Age: 53 Year
  Sex: Female
  Weight: 63 kg

DRUGS (70)
  1. HUMAN IMMUNOGLOBULIN G [Suspect]
     Active Substance: HUMAN IMMUNOGLOBULIN G
     Indication: Immunodeficiency common variable
     Dosage: 90 GRAM, Q4WEEKS
     Dates: start: 20140404
  2. HUMAN IMMUNOGLOBULIN G [Suspect]
     Active Substance: HUMAN IMMUNOGLOBULIN G
     Indication: Primary immunodeficiency syndrome
     Dosage: 30 GRAM, Q4WEEKS
  3. HUMAN IMMUNOGLOBULIN G [Suspect]
     Active Substance: HUMAN IMMUNOGLOBULIN G
     Dosage: 90 GRAM, Q4WEEKS
     Dates: start: 20161215
  4. HUMAN IMMUNOGLOBULIN G [Suspect]
     Active Substance: HUMAN IMMUNOGLOBULIN G
     Dosage: 90 GRAM, Q4WEEKS
  5. HUMAN IMMUNOGLOBULIN G [Suspect]
     Active Substance: HUMAN IMMUNOGLOBULIN G
     Dosage: 30 GRAM, Q4WEEKS
  6. HUMAN IMMUNOGLOBULIN G [Suspect]
     Active Substance: HUMAN IMMUNOGLOBULIN G
     Dosage: 90 GRAM, Q4WEEKS
  7. DIPHENHYDRAMINE HYDROCHLORIDE [Concomitant]
     Active Substance: DIPHENHYDRAMINE HYDROCHLORIDE
  8. ASCORBIC ACID [Concomitant]
     Active Substance: ASCORBIC ACID
  9. SODIUM CHLORIDE [Concomitant]
     Active Substance: SODIUM CHLORIDE
  10. EPINEPHRINE [Concomitant]
     Active Substance: EPINEPHRINE
  11. MIRTAZAPINE [Concomitant]
     Active Substance: MIRTAZAPINE
  12. TRAZODONE HCL [Concomitant]
     Active Substance: TRAZODONE HYDROCHLORIDE
  13. FLUTICASONE PROPIONATE [Concomitant]
     Active Substance: FLUTICASONE PROPIONATE
  14. METHOCARBAMOL [Concomitant]
     Active Substance: METHOCARBAMOL
  15. OMEPRAZOLE [Concomitant]
     Active Substance: OMEPRAZOLE
  16. TRAMADOL HCL [Concomitant]
     Active Substance: TRAMADOL HYDROCHLORIDE
  17. MOTRIN IB [Concomitant]
     Active Substance: IBUPROFEN
  18. AIMOVIG [Concomitant]
     Active Substance: ERENUMAB-AOOE
  19. IPRATROPIUM BROMIDE [Concomitant]
     Active Substance: IPRATROPIUM BROMIDE
  20. SODIUM CHLORIDE [Concomitant]
     Active Substance: SODIUM CHLORIDE
  21. ONDANSETRON [Concomitant]
     Active Substance: ONDANSETRON
  22. LEXAPRO [Concomitant]
     Active Substance: ESCITALOPRAM OXALATE
  23. EXCEDRIN EXTRA STRENGTH [Concomitant]
     Active Substance: ACETAMINOPHEN\ASPIRIN\CAFFEINE
  24. DOXYCYCLINE HYCLATE [Concomitant]
     Active Substance: DOXYCYCLINE HYCLATE
  25. ALBUTEROL SULFATE [Concomitant]
     Active Substance: ALBUTEROL SULFATE
  26. DIETARY SUPPLEMENT\RESVERATROL [Concomitant]
     Active Substance: DIETARY SUPPLEMENT\RESVERATROL
  27. VITAMIN D3 [Concomitant]
     Active Substance: CHOLECALCIFEROL
  28. RITALIN [Concomitant]
     Active Substance: METHYLPHENIDATE HYDROCHLORIDE
  29. BIOTIN [Concomitant]
     Active Substance: BIOTIN
  30. TOPIRAMATE [Concomitant]
     Active Substance: TOPIRAMATE
  31. NURTEC ODT [Concomitant]
     Active Substance: RIMEGEPANT SULFATE
  32. SODIUM BICARBONATE [Concomitant]
     Active Substance: SODIUM BICARBONATE
  33. CYCLOBENZAPRINE [Concomitant]
     Active Substance: CYCLOBENZAPRINE
  34. BETAMETHASONE [Concomitant]
     Active Substance: BETAMETHASONE
  35. ALEVE [Concomitant]
     Active Substance: NAPROXEN SODIUM
  36. ADDERALL [Concomitant]
     Active Substance: AMPHETAMINE ASPARTATE\AMPHETAMINE SULFATE\DEXTROAMPHETAMINE SACCHARATE\DEXTROAMPHETAMINE SULFATE
  37. FAMOTIDINE [Concomitant]
     Active Substance: FAMOTIDINE
  38. HYOSCYAMINE [Concomitant]
     Active Substance: HYOSCYAMINE
  39. RIZATRIPTAN [Concomitant]
     Active Substance: RIZATRIPTAN
  40. BORIC ACID [Concomitant]
     Active Substance: BORIC ACID
  41. SUMATRIPTAN [Concomitant]
     Active Substance: SUMATRIPTAN
  42. FLUBLOK [Concomitant]
     Active Substance: INFLUENZA A VIRUS A/CALIFORNIA/7/2009 (H1N1) RECOMBINANT HEMAGGLUTININ ANTIGEN\INFLUENZA A VIRUS A/V
  43. MAXALT [Concomitant]
     Active Substance: RIZATRIPTAN BENZOATE
  44. PANTOPRAZOLE [Concomitant]
     Active Substance: PANTOPRAZOLE
  45. SPIRONOLACTONE [Concomitant]
     Active Substance: SPIRONOLACTONE
  46. CEFDINIR [Concomitant]
     Active Substance: CEFDINIR
  47. VITAMIN C [Concomitant]
     Active Substance: ASCORBIC ACID
  48. XANAX [Concomitant]
     Active Substance: ALPRAZOLAM
  49. MODERNA COVID-19 VACCINE [Concomitant]
     Active Substance: ELASOMERAN
  50. TIZANIDINE HYDROCHLORIDE [Concomitant]
     Active Substance: TIZANIDINE HYDROCHLORIDE
  51. BETAMETHASONE DIPROPIONATE [Concomitant]
     Active Substance: BETAMETHASONE DIPROPIONATE
  52. TRAMADOL [Concomitant]
     Active Substance: TRAMADOL
  53. TRAZODONE [Concomitant]
     Active Substance: TRAZODONE HYDROCHLORIDE
  54. SUMATRIPTAN SUCCINATE [Concomitant]
     Active Substance: SUMATRIPTAN SUCCINATE
  55. CLARITIN-D NOS [Concomitant]
     Active Substance: LORATADINE\PSEUDOEPHEDRINE SULFATE
  56. GABAPENTIN [Concomitant]
     Active Substance: GABAPENTIN
  57. LOMOTIL [Concomitant]
     Active Substance: ATROPINE SULFATE\DIPHENOXYLATE HYDROCHLORIDE
  58. OPIUM TINCTURE [Concomitant]
     Active Substance: MORPHINE
  59. ADVAIR HFA [Concomitant]
     Active Substance: FLUTICASONE PROPIONATE\SALMETEROL XINAFOATE
  60. MELOXICAM [Concomitant]
     Active Substance: MELOXICAM
  61. GAMMAGARD LIQUID [Concomitant]
     Active Substance: HUMAN IMMUNOGLOBULIN G
  62. ALBUTEROL [Concomitant]
     Active Substance: ALBUTEROL
  63. LINZESS [Concomitant]
     Active Substance: LINACLOTIDE
  64. AUVELITY [Concomitant]
     Active Substance: BUPROPION HYDROCHLORIDE\DEXTROMETHORPHAN HYDROBROMIDE
  65. BUDESONIDE [Concomitant]
     Active Substance: BUDESONIDE
  66. PATADAY [Concomitant]
     Active Substance: OLOPATADINE HYDROCHLORIDE
     Dosage: UNK UNK, BID
  67. TRULANCE [Concomitant]
     Active Substance: PLECANATIDE
  68. Calcium plus D3 + minerals [Concomitant]
  69. FISH OIL [Concomitant]
     Active Substance: FISH OIL
  70. SYSTANE (HYPROMELLOSE 2910 (4000 MPA.S)) [Concomitant]
     Active Substance: HYPROMELLOSE 2910 (4000 MPA.S)

REACTIONS (45)
  - Autoimmune disorder [Unknown]
  - Colitis microscopic [Not Recovered/Not Resolved]
  - Constipation [Unknown]
  - Sinus pain [Recovered/Resolved]
  - Paranasal sinus discomfort [Recovered/Resolved]
  - Neck pain [Unknown]
  - Ulcer [Unknown]
  - Ear infection [Not Recovered/Not Resolved]
  - Acute sinusitis [Unknown]
  - Bronchitis [Unknown]
  - Bronchial hyperreactivity [Unknown]
  - Breast mass [Unknown]
  - Bone atrophy [Unknown]
  - Injury [Unknown]
  - Gastrointestinal microorganism overgrowth [Unknown]
  - Seasonal allergy [Unknown]
  - Fall [Unknown]
  - Anal incontinence [Recovered/Resolved]
  - Pancreatic enzymes decreased [Unknown]
  - Tooth fracture [Unknown]
  - Tooth infection [Unknown]
  - Ageusia [Unknown]
  - Oral pain [Unknown]
  - Toothache [Unknown]
  - Mouth swelling [Unknown]
  - Respiratory tract infection [Unknown]
  - Muscle strain [Unknown]
  - COVID-19 [Unknown]
  - Obstruction [Unknown]
  - Inflammation [Unknown]
  - Dry eye [Unknown]
  - Multiple allergies [Unknown]
  - Sinusitis [Recovering/Resolving]
  - Contusion [Recovering/Resolving]
  - Muscle spasms [Unknown]
  - Pain [Unknown]
  - Vomiting [Unknown]
  - Dyspnoea [Unknown]
  - Arthralgia [Unknown]
  - Diarrhoea [Recovered/Resolved]
  - Abdominal pain [Unknown]
  - Headache [Not Recovered/Not Resolved]
  - Dizziness [Unknown]
  - Nausea [Unknown]
  - Fatigue [Unknown]

NARRATIVE: CASE EVENT DATE: 20210311
